FAERS Safety Report 6560299-2 (Version None)
Quarter: 2010Q1

REPORT INFORMATION
  Report Type: 
  Country: None (occurrence: None)
  Receive Date: 20100129
  Receipt Date: 20050309
  Transmission Date: 20100710
  Serious: Yes (Hospitalization)
  Sender: FDA-Public Use
  Company Number: US-ALLERGAN-200501475

PATIENT
  Age: 65 Year
  Sex: Female
  Weight: 55.455 kg

DRUGS (7)
  1. BOTOX [Suspect]
     Indication: TORTICOLLIS
     Dosage: INJECTED INTO NECK, TRAPEZIUS
     Route: 030
  2. OXALIPLATIN [Suspect]
     Indication: COLON CANCER
     Route: 042
  3. AVASTIN [Concomitant]
     Indication: COLON CANCER
     Dosage: IV DRIP EVERY OTHER WEEK
     Route: 042
  4. XELODA [Concomitant]
     Indication: COLON CANCER
     Route: 048
  5. PROPRANOLOL [Concomitant]
     Indication: BLOOD PRESSURE
     Dosage: DOSE QUANTITY: 10, DOSE UNIT: MG
  6. PREMARIN [Concomitant]
     Indication: HORMONE THERAPY
     Dosage: DOSE QUANTITY: .3, DOSE UNIT: MG
  7. PRINIVIL [Concomitant]
     Indication: TREMOR
     Dosage: DOSE QUANTITY: 20, DOSE UNIT: MG

REACTIONS (6)
  - DEHYDRATION [None]
  - DIARRHOEA [None]
  - GRIP STRENGTH DECREASED [None]
  - MUSCLE CONTRACTIONS INVOLUNTARY [None]
  - MUSCLE SPASMS [None]
  - PYREXIA [None]
